FAERS Safety Report 6663983-5 (Version None)
Quarter: 2010Q2

REPORT INFORMATION
  Report Type: 
  Country: None (occurrence: None)
  Receive Date: 20100401
  Receipt Date: 20100323
  Transmission Date: 20101027
  Serious: Yes (Hospitalization, Other)
  Sender: FDA-Public Use
  Company Number: US-WYE-H14316410

PATIENT
  Sex: Female

DRUGS (7)
  1. ADVIL [Suspect]
     Indication: SPINAL COLUMN STENOSIS
     Dosage: UNKNOWN
     Route: 048
  2. TYLENOL-500 [Suspect]
     Indication: ARTHRITIS
     Dosage: UNKNOWN
     Route: 048
  3. PREMPRO [Concomitant]
     Indication: HOT FLUSH
     Route: 048
  4. PREMPRO [Concomitant]
     Indication: INSOMNIA
  5. CELEBREX [Suspect]
     Indication: SPINAL COLUMN STENOSIS
     Route: 048
     Dates: start: 20080101
  6. CELEBREX [Suspect]
     Route: 048
  7. CELEBREX [Suspect]
     Route: 048

REACTIONS (2)
  - ARTHRITIS [None]
  - GASTRIC DISORDER [None]
